FAERS Safety Report 22316141 (Version 2)
Quarter: 2023Q2

REPORT INFORMATION
  Report Type: Spontaneous
  Country: US (occurrence: US)
  Receive Date: 20230512
  Receipt Date: 20230526
  Transmission Date: 20230722
  Serious: Yes (Hospitalization)
  Sender: FDA-Public Use
  Company Number: US-TEVA-2023-US-2884599

PATIENT
  Age: 54 Year
  Sex: Male

DRUGS (4)
  1. OXYCODONE [Suspect]
     Active Substance: OXYCODONE
     Indication: Wound complication
     Dosage: 40 MILLIGRAM DAILY; 10 MG FOUR TIMES A DAY
     Route: 065
  2. OXYCODONE [Suspect]
     Active Substance: OXYCODONE
     Indication: Pain in extremity
  3. BUPRENORPHINE [Suspect]
     Active Substance: BUPRENORPHINE
     Indication: Pain in extremity
     Dosage: 2 MILLIGRAM DAILY; 1MG TWICE A DAY ON DAY 1
     Route: 065
  4. BUPRENORPHINE [Suspect]
     Active Substance: BUPRENORPHINE
     Indication: Wound complication
     Dosage: 4 MILLIGRAM DAILY; 2MG TWICE A DAY FROM DAY 2
     Route: 065

REACTIONS (2)
  - Sedation [Recovered/Resolved]
  - Confusional state [Recovered/Resolved]
